FAERS Safety Report 4588668-0 (Version None)
Quarter: 2005Q1

REPORT INFORMATION
  Report Type: 
  Country: None (occurrence: None)
  Receive Date: 20050222
  Receipt Date: 20000630
  Transmission Date: 20050727
  Serious: Yes (Other)
  Sender: FDA-Public Use
  Company Number: US-MERCK-00070003

PATIENT
  Age: 72 Year
  Sex: Female

DRUGS (3)
  1. VIOXX [Suspect]
     Indication: OSTEOARTHRITIS
     Route: 048
     Dates: start: 20000101
  2. ATENOLOL [Concomitant]
     Route: 065
  3. DIURETIC PREPARATION (COMPOSITION UNSPECIFIED) [Concomitant]
     Route: 065

REACTIONS (6)
  - ADVERSE EVENT [None]
  - ASTHENIA [None]
  - CEREBROVASCULAR ACCIDENT [None]
  - GENERAL SYMPTOM [None]
  - MYOCARDIAL INFARCTION [None]
  - OEDEMA PERIPHERAL [None]
